FAERS Safety Report 24170077 (Version 1)
Quarter: 2024Q3

REPORT INFORMATION
  Report Type: Spontaneous
  Country: CA (occurrence: CA)
  Receive Date: 20240803
  Receipt Date: 20240803
  Transmission Date: 20241017
  Serious: Yes (Other)
  Sender: AUROBINDO
  Company Number: CA-AUROBINDO-AUR-APL-2024-038057

PATIENT
  Age: 93 Year
  Sex: Female

DRUGS (3)
  1. AMLODIPINE [Suspect]
     Active Substance: AMLODIPINE BESYLATE
     Indication: Product used for unknown indication
     Dosage: UNK
     Route: 065
  2. MEPOLIZUMAB [Suspect]
     Active Substance: MEPOLIZUMAB
     Indication: Asthma
     Dosage: 100 MILLIGRAM, 1 EVERY 4 WEEK
     Route: 058
  3. MEPOLIZUMAB [Suspect]
     Active Substance: MEPOLIZUMAB
     Indication: Asthma
     Dosage: 100 MILLIGRAM, 1 EVERY 4 WEEK
     Route: 058

REACTIONS (11)
  - Asthma [Unknown]
  - Blood pressure decreased [Unknown]
  - COVID-19 [Unknown]
  - Constipation [Unknown]
  - Cough [Unknown]
  - Dyspnoea [Unknown]
  - Lung neoplasm malignant [Unknown]
  - Malaise [Unknown]
  - Pyrexia [Unknown]
  - Wound [Unknown]
  - Inappropriate schedule of product administration [Unknown]
